FAERS Safety Report 6968197-7 (Version None)
Quarter: 2010Q3

REPORT INFORMATION
  Report Type: 
  Country: None (occurrence: None)
  Receive Date: 20100907
  Receipt Date: 20100830
  Transmission Date: 20110219
  Serious: Yes (Hospitalization)
  Sender: FDA-Public Use
  Company Number: JP-ROCHE-681864

PATIENT
  Sex: Female

DRUGS (10)
  1. TOCILIZUMAB [Suspect]
     Indication: RHEUMATOID ARTHRITIS
     Route: 041
     Dates: start: 20090710, end: 20090710
  2. TOCILIZUMAB [Suspect]
     Route: 041
     Dates: start: 20090807, end: 20090807
  3. TOCILIZUMAB [Suspect]
     Route: 041
     Dates: start: 20090904, end: 20090904
  4. TOCILIZUMAB [Suspect]
     Route: 041
     Dates: start: 20091002, end: 20091002
  5. TOCILIZUMAB [Suspect]
     Route: 041
     Dates: start: 20091030, end: 20091030
  6. TOCILIZUMAB [Suspect]
     Route: 041
     Dates: start: 20091127, end: 20091129
  7. TOCILIZUMAB [Suspect]
     Route: 041
     Dates: start: 20091225, end: 20091225
  8. RHEUMATREX [Suspect]
     Indication: RHEUMATOID ARTHRITIS
     Dosage: UNCERTAINITY.
     Route: 048
     Dates: end: 20091127
  9. ENBREL [Suspect]
     Indication: RHEUMATOID ARTHRITIS
     Route: 058
     Dates: start: 20050826, end: 20090612
  10. FIRSTCIN [Concomitant]
     Route: 041
     Dates: start: 20100124, end: 20100128

REACTIONS (1)
  - INTERSTITIAL LUNG DISEASE [None]
